FAERS Safety Report 15577779 (Version 3)
Quarter: 2018Q4

REPORT INFORMATION
  Report Type: Spontaneous
  Country: CA (occurrence: CA)
  Receive Date: 20181102
  Receipt Date: 20181112
  Transmission Date: 20190205
  Serious: Yes (Other)
  Sender: FDA-Public Use
  Company Number: CA-ORION CORPORATION ORION PHARMA-TREX2018-3122

PATIENT
  Age: 72 Year
  Sex: Male
  Weight: 70.8 kg

DRUGS (10)
  1. INFLECTRA [Concomitant]
     Active Substance: INFLIXIMAB-DYYB
     Indication: COLITIS ULCERATIVE
     Dosage: FOR WEEKS 0, 2, 6 AND Q (EVERY) 8 WEEKS THEREAFTER
     Route: 042
     Dates: start: 20181029
  2. VITAMIN B12 [Concomitant]
     Active Substance: CYANOCOBALAMIN
     Route: 065
  3. SILDENAFIL. [Concomitant]
     Active Substance: SILDENAFIL
     Dosage: AS NEEDED
     Route: 048
  4. TESTOSTERONE. [Concomitant]
     Active Substance: TESTOSTERONE
     Route: 048
  5. TADALAFIL. [Concomitant]
     Active Substance: TADALAFIL
     Dosage: AS NEEDED
     Route: 048
  6. ASACOL [Concomitant]
     Active Substance: MESALAMINE
     Route: 065
  7. METHOTREXATE (TRADE NAME UNKNOWN) [Suspect]
     Active Substance: METHOTREXATE
     Indication: PRODUCT USED FOR UNKNOWN INDICATION
     Dosage: TAKE 10 TABLETS WEEKLY
     Route: 065
     Dates: start: 20180801
  8. FOLIC ACID. [Concomitant]
     Active Substance: FOLIC ACID
     Dosage: I MG DAILY EXCEPT MTX DAYS
     Route: 048
  9. PREDNISONE. [Concomitant]
     Active Substance: PREDNISONE
     Dosage: TAPERING BY 5 MG WEEKLY
     Route: 065
     Dates: start: 201808, end: 201810
  10. VALTREX [Concomitant]
     Active Substance: VALACYCLOVIR HYDROCHLORIDE
     Route: 048
     Dates: end: 20181001

REACTIONS (4)
  - Drug ineffective [Unknown]
  - Seasonal allergy [Unknown]
  - Herpes zoster [Unknown]
  - Skin laceration [Recovered/Resolved]

NARRATIVE: CASE EVENT DATE: 2018
